FAERS Safety Report 6286566-8 (Version None)
Quarter: 2009Q3

REPORT INFORMATION
  Report Type: 
  Country: None (occurrence: None)
  Receive Date: 20090727
  Receipt Date: 20090727
  Transmission Date: 20100115
  Serious: Yes (Disabling)
  Sender: FDA-Public Use
  Company Number: None

PATIENT
  Age: 70 Year
  Sex: Male
  Weight: 102.0593 kg

DRUGS (2)
  1. ZICAM - NASAL GEL 15 ML COLD REMEDY MATRIXX INITIATIVES [Suspect]
     Dosage: 1 X 4 HRS 4 HRS NASAL SPRAY (GEL)
     Route: 045
     Dates: start: 20090401
  2. ZICAM - SWABS 20 SWABS (NDC 67250-0012-20) MATRIXX INITIATIVES [Suspect]
     Dosage: 1 X 6 HRS 6 HRS NASAL APPLICATOR
     Route: 045
     Dates: start: 20090401

REACTIONS (1)
  - ANOSMIA [None]
